FAERS Safety Report 5533227-6 (Version None)
Quarter: 2007Q4

REPORT INFORMATION
  Report Type: 
  Country: None (occurrence: None)
  Receive Date: 20071120
  Receipt Date: 20070810
  Transmission Date: 20080405
  Serious: No
  Sender: FDA-Public Use
  Company Number: WAES 0706USA04421

PATIENT
  Age: 39 Year
  Sex: Female
  Weight: 136.0791 kg

DRUGS (4)
  1. JANUVIA [Suspect]
     Indication: BLOOD GLUCOSE INCREASED
     Dosage: PO
     Route: 048
  2. JANUVIA [Suspect]
     Indication: DIABETES MELLITUS
     Dosage: PO
     Route: 048
  3. METFORMIN HCL [Concomitant]
  4. PRAVASTATIN SODIUM [Concomitant]

REACTIONS (1)
  - HEADACHE [None]
